FAERS Safety Report 15255723 (Version 1)
Quarter: 2018Q3

REPORT INFORMATION
  Report Type: Spontaneous
  Country: US (occurrence: US)
  Receive Date: 20180717
  Receipt Date: 20180717
  Transmission Date: 20181010
  Serious: Yes (Life-Threatening, Hospitalization)
  Sender: FDA-Public Use
  Company Number: None

PATIENT
  Age: 52 Year
  Sex: Female
  Weight: 57.6 kg

DRUGS (6)
  1. RIBOCICLIB. [Suspect]
     Active Substance: RIBOCICLIB
     Indication: ENDOMETRIAL CANCER
     Route: 048
  2. LETROZOLE. [Suspect]
     Active Substance: LETROZOLE
     Indication: ENDOMETRIAL CANCER
     Route: 048
     Dates: start: 20180123, end: 20180716
  3. MAGNESIUM CHLORIDE. [Concomitant]
     Active Substance: MAGNESIUM CHLORIDE
  4. METOPROLOL SUCCINATE. [Concomitant]
     Active Substance: METOPROLOL SUCCINATE
  5. FLUOXETINE [Concomitant]
     Active Substance: FLUOXETINE HYDROCHLORIDE
  6. LEVOTHYROXINE. [Concomitant]
     Active Substance: LEVOTHYROXINE

REACTIONS (9)
  - Blood pressure diastolic decreased [None]
  - Respiratory rate increased [None]
  - Pneumonia [None]
  - Chills [None]
  - Blood culture positive [None]
  - Feeling cold [None]
  - Blood pressure diastolic increased [None]
  - Febrile neutropenia [None]
  - Oxygen saturation decreased [None]

NARRATIVE: CASE EVENT DATE: 20160716
